FAERS Safety Report 4411023-0 (Version None)
Quarter: 2004Q3

REPORT INFORMATION
  Report Type: 
  Country: None (occurrence: None)
  Receive Date: 20040729
  Receipt Date: 20040504
  Transmission Date: 20050211
  Serious: Yes (Disabling)
  Sender: FDA-Public Use
  Company Number: US-BRISTOL-MYERS SQUIBB COMPANY-12579694

PATIENT
  Age: 63 Year
  Sex: Female

DRUGS (3)
  1. PRAVACHOL [Suspect]
     Indication: HYPERLIPIDAEMIA
     Route: 048
     Dates: start: 20040101
  2. AVAPRO [Concomitant]
  3. PLAVIX [Concomitant]

REACTIONS (2)
  - EYE PRURITUS [None]
  - KERATOCONJUNCTIVITIS SICCA [None]
